FAERS Safety Report 5258703-5 (Version None)
Quarter: 2007Q1

REPORT INFORMATION
  Report Type: 
  Country: None (occurrence: None)
  Receive Date: 20070305
  Receipt Date: 20070219
  Transmission Date: 20070707
  Serious: Yes (Hospitalization, Other)
  Sender: FDA-Public Use
  Company Number: L07-GER-00824-01

PATIENT
  Age: 63 Year
  Sex: Male

DRUGS (3)
  1. CITALOPRAM HYDROBROMIDE [Suspect]
     Indication: DEPRESSION
     Dosage: 20 MG QD
  2. CITALOPRAM HYDROBROMIDE [Suspect]
     Indication: PROPHYLAXIS
     Dosage: 20 MG QD
  3. INTERFERON-ALPHA (INTERFERON ALFA) [Suspect]
     Indication: HEPATITIS C VIRUS

REACTIONS (4)
  - CONDITION AGGRAVATED [None]
  - MOVEMENT DISORDER [None]
  - MUSCULAR WEAKNESS [None]
  - SOMATOFORM DISORDER [None]
